FAERS Safety Report 12284001 (Version 3)
Quarter: 2016Q2

REPORT INFORMATION
  Report Type: Spontaneous
  Country: US (occurrence: US)
  Receive Date: 20160419
  Receipt Date: 20160609
  Transmission Date: 20160815
  Serious: Yes (Other)
  Sender: FDA-Public Use
  Company Number: US-BAUSCH-BL-2016-008788

PATIENT
  Sex: Female

DRUGS (2)
  1. APRISO [Suspect]
     Active Substance: MESALAMINE
     Dosage: IN THE MORNING
     Route: 048
  2. APRISO [Suspect]
     Active Substance: MESALAMINE
     Indication: COLITIS ULCERATIVE
     Route: 048
     Dates: start: 20160407

REACTIONS (6)
  - Colitis [Not Recovered/Not Resolved]
  - Haemorrhage [Unknown]
  - Treatment noncompliance [Unknown]
  - Pain [Not Recovered/Not Resolved]
  - Hypokinesia [Unknown]
  - Muscle spasms [Unknown]
